FAERS Safety Report 6619201-7 (Version None)
Quarter: 2010Q1

REPORT INFORMATION
  Report Type: 
  Country: None (occurrence: None)
  Receive Date: 20100302
  Receipt Date: 20100210
  Transmission Date: 20100710
  Serious: Yes (Life-Threatening, Hospitalization, Other)
  Sender: FDA-Public Use
  Company Number: TRP_06674_2009

PATIENT
  Sex: Male
  Weight: 72.1219 kg

DRUGS (2)
  1. INFERGEN [Suspect]
     Indication: HEPATITIS C
     Dosage: 15 UG QD SUBCUTANEOUS
     Route: 058
     Dates: start: 20091019, end: 20100107
  2. RIBAVIRIN [Suspect]
     Indication: HEPATITIS C
     Dosage: 400 MG, BID ORAL
     Route: 048
     Dates: start: 20091019, end: 20100107

REACTIONS (2)
  - AMAUROSIS FUGAX [None]
  - CELLULITIS [None]
